FAERS Safety Report 7966327-1 (Version None)
Quarter: 2011Q4

REPORT INFORMATION
  Report Type: 
  Country: None (occurrence: None)
  Receive Date: 20111208
  Receipt Date: 20111208
  Transmission Date: 20120403
  Serious: Yes (Hospitalization, Other)
  Sender: FDA-Public Use
  Company Number: DE-ABBOTT-11P-062-0850126-00

PATIENT
  Age: 57 Year
  Sex: Female
  Weight: 88 kg

DRUGS (2)
  1. HUMIRA [Suspect]
     Indication: COLITIS ULCERATIVE
     Route: 058
     Dates: start: 20110214, end: 20110712
  2. INFLIXIMAB [Concomitant]
     Indication: CROHN'S DISEASE
     Route: 042
     Dates: start: 20110725, end: 20110811

REACTIONS (4)
  - CROHN'S DISEASE [None]
  - INFLAMMATORY BOWEL DISEASE [None]
  - DRUG INEFFECTIVE [None]
  - INTESTINAL STENOSIS [None]
